FAERS Safety Report 6686824-9 (Version None)
Quarter: 2010Q2

REPORT INFORMATION
  Report Type: 
  Country: None (occurrence: None)
  Receive Date: 20100416
  Receipt Date: 20100416
  Transmission Date: 20101027
  Serious: Yes (Hospitalization, Disabling)
  Sender: FDA-Public Use
  Company Number: None

PATIENT
  Age: 38 Year
  Sex: Female
  Weight: 66.2252 kg

DRUGS (2)
  1. GENTAMICIN [Suspect]
     Indication: INFECTION PROPHYLAXIS
     Dosage: 500MG X 2 INTRAVENOUS DRIP 041
     Route: 041
     Dates: start: 20080227
  2. LEVAQUIN [Suspect]
     Indication: INFECTION PROPHYLAXIS
     Dosage: 500 MG X 4 ORAL 047
     Route: 048
     Dates: start: 20100228

REACTIONS (3)
  - DYSPHONIA [None]
  - STEVENS-JOHNSON SYNDROME [None]
  - WHEEZING [None]
